FAERS Safety Report 4850643-6 (Version None)
Quarter: 2005Q4

REPORT INFORMATION
  Report Type: 
  Country: None (occurrence: None)
  Receive Date: 20051212
  Receipt Date: 20051130
  Transmission Date: 20060501
  Serious: Yes (Hospitalization)
  Sender: FDA-Public Use
  Company Number: US-JNJFOC-20051101876

PATIENT
  Sex: Female
  Weight: 48.99 kg

DRUGS (4)
  1. REMICADE [Suspect]
     Route: 042
  2. REMICADE [Suspect]
     Indication: RHEUMATOID ARTHRITIS
     Dosage: 2-3 VIALS
     Route: 042
  3. PREDNISONE [Concomitant]
  4. ATENOLOL [Concomitant]
     Dosage: DAILY

REACTIONS (2)
  - PAIN [None]
  - VOMITING [None]
